FAERS Safety Report 23565719 (Version 2)
Quarter: 2024Q2

REPORT INFORMATION
  Report Type: Spontaneous
  Country: PL (occurrence: PL)
  Receive Date: 20240226
  Receipt Date: 20240415
  Transmission Date: 20240716
  Serious: Yes (Hospitalization, Other)
  Sender: FDA-Public Use
  Company Number: None

PATIENT
  Age: 41 Year
  Sex: Male

DRUGS (16)
  1. PREGABALIN [Suspect]
     Active Substance: PREGABALIN
     Indication: Visceral pain
     Dosage: 2 X 300 MG
  2. VALPROIC ACID [Suspect]
     Active Substance: VALPROIC ACID
     Indication: Pain
  3. FENTANYL [Suspect]
     Active Substance: FENTANYL\FENTANYL CITRATE
     Indication: Visceral pain
     Dosage: 100 UG/H
     Route: 062
  4. FENTANYL [Suspect]
     Active Substance: FENTANYL\FENTANYL CITRATE
     Indication: Pain prophylaxis
     Dosage: 200 UG AS NEEDED FOR BREAKTHROUGH PAIN
     Route: 045
  5. FENTANYL [Suspect]
     Active Substance: FENTANYL\FENTANYL CITRATE
     Dosage: 50 UG/H
     Route: 062
  6. ACETAMINOPHEN [Suspect]
     Active Substance: ACETAMINOPHEN
     Indication: Visceral pain
     Dosage: 3 X 1 G
  7. SERTRALINE [Suspect]
     Active Substance: SERTRALINE HYDROCHLORIDE
     Indication: Affective disorder
     Dosage: 50 MG IN THE MORNING
  8. SERTRALINE [Suspect]
     Active Substance: SERTRALINE HYDROCHLORIDE
     Indication: Irritability
  9. SERTRALINE [Suspect]
     Active Substance: SERTRALINE HYDROCHLORIDE
     Indication: Sleep disorder
  10. SERTRALINE [Suspect]
     Active Substance: SERTRALINE HYDROCHLORIDE
     Indication: Tearfulness
  11. MIANSERIN [Suspect]
     Active Substance: MIANSERIN
     Indication: Affective disorder
     Dosage: 30 MG AT NIGH
  12. MIANSERIN [Suspect]
     Active Substance: MIANSERIN
     Indication: Irritability
     Dosage: 30 MG IN THE EVENING
  13. MIANSERIN [Suspect]
     Active Substance: MIANSERIN
     Indication: Tearfulness
  14. MIANSERIN [Suspect]
     Active Substance: MIANSERIN
     Indication: Sleep disorder
  15. BUTYLSCOPOLAMINE BROMIDE [Suspect]
     Active Substance: BUTYLSCOPOLAMINE BROMIDE
     Indication: Abdominal pain
     Dosage: 3 X 10 MG (10 MG 3 TIMES DAILY)
     Route: 048
  16. BUTYLSCOPOLAMINE BROMIDE [Suspect]
     Active Substance: BUTYLSCOPOLAMINE BROMIDE
     Dosage: 3 X 10 MG
     Route: 048

REACTIONS (5)
  - Hyperaesthesia [Recovered/Resolved]
  - Medication error [Unknown]
  - Drug interaction [Unknown]
  - Neurotoxicity [Unknown]
  - Hypersomnia [Unknown]
